FAERS Safety Report 6038290-4 (Version None)
Quarter: 2009Q1

REPORT INFORMATION
  Report Type: 
  Country: None (occurrence: None)
  Receive Date: 20090115
  Receipt Date: 20090106
  Transmission Date: 20090719
  Serious: Yes (Other)
  Sender: FDA-Public Use
  Company Number: JP-PFIZER INC-2008157054

PATIENT

DRUGS (1)
  1. SULPERAZON [Suspect]
     Indication: CHOLECYSTITIS
     Dosage: 1 G, 2X/DAY
     Dates: start: 20081212, end: 20081217

REACTIONS (1)
  - CHOLESTASIS [None]
